FAERS Safety Report 9005020 (Version 1)
Quarter: 2013Q1

REPORT INFORMATION
  Report Type: Report from Study
  Country: CA (occurrence: CA)
  Receive Date: 20130109
  Receipt Date: 20130109
  Transmission Date: 20140127
  Serious: Yes (Other)
  Sender: FDA-Public Use
  Company Number: CA-JNJFOC-20130102139

PATIENT
  Sex: Female
  Weight: 53.6 kg

DRUGS (6)
  1. REMICADE [Suspect]
     Indication: RHEUMATOID ARTHRITIS
     Route: 042
     Dates: start: 20060124
  2. DIDROCAL [Concomitant]
     Route: 065
  3. FOLIC ACID [Concomitant]
     Route: 065
  4. METHOTREXATE [Concomitant]
     Route: 065
  5. LIPITOR [Concomitant]
     Route: 065
  6. BISOPROLOL [Concomitant]
     Route: 065

REACTIONS (1)
  - Cataract [Unknown]
